FAERS Safety Report 8802183 (Version 1)
Quarter: 2012Q4

REPORT INFORMATION
  Report Type: 
  Country: US (occurrence: US)
  Receive Date: 20120921
  Receipt Date: 20120921
  Transmission Date: 20130627
  Serious: Yes (Other)
  Sender: FDA-Public Use
  Company Number: US-BAYER-2012-097860

PATIENT
  Age: 53 Year
  Sex: Male

DRUGS (13)
  1. BETASERON [Suspect]
     Indication: MULTIPLE SCLEROSIS
     Dosage: 8 miu, QOD
     Route: 058
     Dates: start: 20060106
  2. CYMBALTA [Concomitant]
  3. KLONOPIN [Concomitant]
  4. MINOCIN [Concomitant]
  5. FLEXERIL [Concomitant]
  6. TEGRETOL [Concomitant]
  7. LIORESAL [Concomitant]
  8. OXYIR [Concomitant]
  9. VITAMIN B12 [Concomitant]
  10. VITAMIN C [Concomitant]
  11. VITAMIN D [Concomitant]
  12. OMEGA-3 FATTY ACIDS [Concomitant]
  13. MULTIVITAMINS PLUS IRON [Concomitant]

REACTIONS (4)
  - Chills [Recovering/Resolving]
  - Loss of consciousness [Recovering/Resolving]
  - Fall [Recovering/Resolving]
  - Scratch [Recovering/Resolving]
